FAERS Safety Report 14418128 (Version 1)
Quarter: 2018Q1

REPORT INFORMATION
  Report Type: Spontaneous
  Country: CN (occurrence: CN)
  Receive Date: 20180122
  Receipt Date: 20180122
  Transmission Date: 20180509
  Serious: Yes (Life-Threatening, Hospitalization, Other)
  Sender: FDA-Public Use
  Company Number: CN-NOVOPROD-581193

PATIENT
  Age: 62 Year
  Sex: Male
  Weight: 73 kg

DRUGS (4)
  1. LEVOTHYROXINE SODIUM. [Concomitant]
     Active Substance: LEVOTHYROXINE SODIUM
     Indication: HYPOTHYROIDISM
     Dosage: 50 MG, QD
     Route: 048
     Dates: start: 20171026, end: 20171109
  2. NOVORAPID [Suspect]
     Active Substance: INSULIN ASPART
     Indication: TYPE 2 DIABETES MELLITUS
     Dosage: 28 U, QD(10-8-10 U)
     Route: 058
     Dates: start: 20171026, end: 20171109
  3. METHIMAZOLE. [Concomitant]
     Active Substance: METHIMAZOLE
     Indication: THYROXINE ABNORMAL
     Dosage: 10 MG, QD
     Route: 048
     Dates: start: 20171026, end: 20171109
  4. LANTUS [Suspect]
     Active Substance: INSULIN GLARGINE
     Indication: TYPE 2 DIABETES MELLITUS
     Dosage: 8 U, QD
     Route: 058
     Dates: start: 20171026, end: 20171109

REACTIONS (2)
  - Hyponatraemia [Unknown]
  - Hypoglycaemic coma [Recovered/Resolved]

NARRATIVE: CASE EVENT DATE: 20171109
